FAERS Safety Report 10916246 (Version 1)
Quarter: 2015Q1

REPORT INFORMATION
  Report Type: Spontaneous
  Country: DK (occurrence: FR)
  Receive Date: 20150316
  Receipt Date: 20150316
  Transmission Date: 20150721
  Serious: Yes (Hospitalization)
  Sender: FDA-Public Use
  Company Number: FR-FRI-1000075266

PATIENT
  Age: 64 Year
  Sex: Female

DRUGS (4)
  1. MOPRAL [Concomitant]
     Active Substance: OMEPRAZOLE SODIUM
     Indication: PRODUCT USED FOR UNKNOWN INDICATION
     Dosage: 1 DF
  2. ESCITALOPRAM [Suspect]
     Active Substance: ESCITALOPRAM OXALATE
     Indication: PRODUCT USED FOR UNKNOWN INDICATION
     Dosage: 1 DF
     Route: 048
  3. ESCITALOPRAM [Suspect]
     Active Substance: ESCITALOPRAM OXALATE
     Dosage: OVERDOSE OF 1 INTAKE OF UNKNOWN DOSE
     Route: 048
     Dates: start: 20150102, end: 20150102
  4. LEXOMIL ROCHE [Suspect]
     Active Substance: BROMAZEPAM
     Indication: PANIC ATTACK
     Dosage: OVERDOSE OF 1 INTAKE OF UNKNOWN DOSE
     Route: 048
     Dates: start: 20150102, end: 20150102

REACTIONS (3)
  - Somnolence [Recovered/Resolved]
  - Toxicity to various agents [Recovered/Resolved]
  - Suicide attempt [Recovered/Resolved]

NARRATIVE: CASE EVENT DATE: 20150102
